FAERS Safety Report 7591731-3 (Version None)
Quarter: 2011Q3

REPORT INFORMATION
  Report Type: 
  Country: None (occurrence: None)
  Receive Date: 20110701
  Receipt Date: 20110701
  Transmission Date: 20111222
  Serious: Yes (Other)
  Sender: FDA-Public Use
  Company Number: None

PATIENT
  Age: 49 Year
  Sex: Female
  Weight: 95.2554 kg

DRUGS (2)
  1. NUVIGIL [Suspect]
     Indication: INSOMNIA
     Dosage: 150MG ONCE A DAY PO
     Route: 048
     Dates: start: 20110528, end: 20110608
  2. NUVIGIL [Suspect]
     Indication: CIRCADIAN RHYTHM SLEEP DISORDER
     Dosage: 150MG ONCE A DAY PO
     Route: 048
     Dates: start: 20110528, end: 20110608

REACTIONS (2)
  - MUSCLE TWITCHING [None]
  - DRUG HYPERSENSITIVITY [None]
